FAERS Safety Report 6786219-3 (Version None)
Quarter: 2010Q2

REPORT INFORMATION
  Report Type: 
  Country: None (occurrence: None)
  Receive Date: 20100623
  Receipt Date: 20100615
  Transmission Date: 20101027
  Serious: Yes (Other)
  Sender: FDA-Public Use
  Company Number: FR-ASTRAZENECA-2010SE28704

PATIENT
  Age: 29598 Day
  Sex: Female

DRUGS (13)
  1. NEXIUM [Suspect]
     Route: 048
     Dates: end: 20100521
  2. PREVISCAN [Suspect]
     Indication: ATRIAL FIBRILLATION
     Dates: start: 20100511, end: 20100521
  3. FENOFIBRATE [Suspect]
     Dates: end: 20100521
  4. CORDARONE [Concomitant]
     Dates: start: 20100503
  5. LORAZEPAM [Concomitant]
  6. NORSET [Concomitant]
  7. SPIRIVA [Concomitant]
  8. SYMBICORT [Concomitant]
  9. MEDIATENSYL [Concomitant]
  10. CACIT D3 [Concomitant]
  11. VITALOGINK [Concomitant]
  12. CALCIPARINE [Concomitant]
     Dates: start: 20100502
  13. ROCEPHIN [Concomitant]
     Dates: start: 20100507, end: 20100513

REACTIONS (2)
  - LEUKOPENIA [None]
  - NEUTROPENIA [None]
